FAERS Safety Report 6070355-3 (Version None)
Quarter: 2009Q1

REPORT INFORMATION
  Report Type: 
  Country: None (occurrence: None)
  Receive Date: 20090209
  Receipt Date: 20090202
  Transmission Date: 20090719
  Serious: Yes (Hospitalization, Other)
  Sender: FDA-Public Use
  Company Number: US-ELI_LILLY_AND_COMPANY-US200901002586

PATIENT
  Sex: Female
  Weight: 57.596 kg

DRUGS (9)
  1. HUMALOG [Suspect]
  2. NEXIUM [Concomitant]
     Dosage: 4 MG, UNK
     Dates: start: 20031201
  3. PRAVACHOL [Concomitant]
     Indication: HYPERLIPIDAEMIA
     Dosage: 40 MG, UNK
     Dates: start: 20060801
  4. ALTACE [Concomitant]
     Indication: HYPERTENSION
     Dosage: 10 MG, UNK
     Dates: start: 20030601
  5. AVALIDE [Concomitant]
     Indication: HYPERTENSION
     Dosage: UNK, UNK
     Dates: start: 20030601
  6. AMBIEN [Concomitant]
     Dosage: 10 MG, AS NEEDED
     Dates: start: 20040601
  7. ATIVAN [Concomitant]
     Dosage: 0.5 MG, AS NEEDED
     Dates: start: 20070701
  8. NORVASC [Concomitant]
     Indication: HYPERTENSION
     Dosage: 10 MG, UNK
     Dates: start: 20050401
  9. ACTOMOL [Concomitant]
     Indication: OSTEOARTHRITIS
     Dosage: 35 MG, UNK
     Dates: start: 20060801

REACTIONS (6)
  - HYPOGLYCAEMIA [None]
  - INCORRECT DOSE ADMINISTERED [None]
  - INTERVERTEBRAL DISC OPERATION [None]
  - INTERVERTEBRAL DISC PROTRUSION [None]
  - NERVE COMPRESSION [None]
  - PRODUCT QUALITY ISSUE [None]
